FAERS Safety Report 4879067-2 (Version None)
Quarter: 2005Q4

REPORT INFORMATION
  Report Type: 
  Country: None (occurrence: None)
  Receive Date: 20051212
  Receipt Date: 20050913
  Transmission Date: 20060501
  Serious: Yes (Hospitalization)
  Sender: FDA-Public Use
  Company Number: 05P-163-0298027-00

PATIENT
  Age: 9 Year
  Sex: Male

DRUGS (2)
  1. BIAXIN [Suspect]
     Indication: BRONCHIOLITIS
     Dosage: PER ORAL
     Route: 048
  2. ZELNORM [Suspect]
     Indication: PANCREATITIS
     Dosage: 6 MG, PER ORAL
     Route: 048
     Dates: start: 20050203, end: 20050205

REACTIONS (6)
  - DIARRHOEA [None]
  - FREQUENT BOWEL MOVEMENTS [None]
  - GASTRITIS [None]
  - ILEITIS [None]
  - OESOPHAGITIS [None]
  - PANCREATITIS [None]
